FAERS Safety Report 4794274-5 (Version None)
Quarter: 2005Q4

REPORT INFORMATION
  Report Type: 
  Country: None (occurrence: None)
  Receive Date: 20051011
  Receipt Date: 20050920
  Transmission Date: 20060501
  Serious: Yes (Hospitalization)
  Sender: FDA-Public Use
  Company Number: JP-JPN-A20052233

PATIENT
  Age: 73 Year
  Sex: Female
  Weight: 45 kg

DRUGS (7)
  1. VALTREX [Suspect]
     Indication: HERPES ZOSTER
     Dosage: 1000MG THREE TIMES PER DAY
     Route: 048
     Dates: start: 20050912, end: 20050914
  2. MENESIT [Concomitant]
     Indication: PARKINSON'S DISEASE
     Dosage: 300MG PER DAY
     Route: 048
     Dates: start: 20050812
  3. NAUZELIN [Concomitant]
     Indication: PARKINSON'S DISEASE
     Dosage: 30MG PER DAY
     Route: 048
     Dates: start: 20050812, end: 20050915
  4. CABASER [Concomitant]
     Indication: PARKINSON'S DISEASE
     Route: 048
     Dates: start: 20050813
  5. CONIEL [Concomitant]
     Indication: HYPERTENSION
     Dosage: 4MG PER DAY
     Route: 048
     Dates: start: 20050813
  6. DIOVAN [Concomitant]
     Indication: HYPERTENSION
     Dosage: 40MG PER DAY
     Route: 048
     Dates: start: 20050928
  7. DOPASTON [Concomitant]
     Indication: PARKINSON'S DISEASE
     Dosage: 50MG PER DAY
     Route: 042
     Dates: start: 20050916, end: 20050921

REACTIONS (9)
  - ASTHENIA [None]
  - BLOOD CHLORIDE DECREASED [None]
  - BLOOD CREATININE INCREASED [None]
  - BLOOD POTASSIUM DECREASED [None]
  - BLOOD UREA INCREASED [None]
  - DECREASED ACTIVITY [None]
  - DEPRESSED LEVEL OF CONSCIOUSNESS [None]
  - RENAL FAILURE ACUTE [None]
  - SOMNOLENCE [None]
